FAERS Safety Report 10254523 (Version 1)
Quarter: 2014Q2

REPORT INFORMATION
  Report Type: Spontaneous
  Country: US (occurrence: None)
  Receive Date: 20140620
  Receipt Date: 20140620
  Transmission Date: 20141212
  Serious: Yes (Other)
  Sender: FDA-Public Use
  Company Number: None

PATIENT
  Age: 53 Year
  Sex: Male

DRUGS (21)
  1. SOVALDI [Suspect]
     Indication: HEPATITIS C
     Route: 048
     Dates: start: 20140524
  2. METFORMIN [Concomitant]
  3. DITALOPRAM [Concomitant]
  4. DIALOPRAM [Concomitant]
  5. GABAPENTIN [Concomitant]
  6. AMLODIPINE BESYLATE [Concomitant]
  7. RIBASPHERE [Concomitant]
  8. PEGASYS PRODUCT [Concomitant]
  9. RIBAVIRIN [Concomitant]
  10. CITALOPRAM [Concomitant]
  11. MAALOX ADVANCED SUSPENSION [Concomitant]
  12. PEGASYS INJ [Concomitant]
  13. BUPROPION SR [Concomitant]
  14. OXYCODONE [Concomitant]
  15. SULFAMETH/TRIMETHOPEN [Concomitant]
  16. CITALOPRAM [Concomitant]
  17. BUPROPION SR [Concomitant]
  18. B-COMPLEX TAB [Concomitant]
  19. CIPROFLOXACIN [Concomitant]
  20. SOVALDI [Concomitant]
  21. TRIAMONOLONE [Concomitant]

REACTIONS (6)
  - Nausea [None]
  - Fatigue [None]
  - Gastroenteritis viral [None]
  - Headache [None]
  - Arthralgia [None]
  - Myalgia [None]
